FAERS Safety Report 8223258-X (Version None)
Quarter: 2012Q1

REPORT INFORMATION
  Report Type: 
  Country: None (occurrence: None)
  Receive Date: 20120321
  Receipt Date: 20120305
  Transmission Date: 20120608
  Serious: Yes (Death, Other)
  Sender: FDA-Public Use
  Company Number: KR-ROCHE-1048161

PATIENT
  Age: 53 Year
  Sex: Male

DRUGS (2)
  1. ALTEPLASE [Suspect]
     Indication: ISCHAEMIC STROKE
     Route: 042
  2. UROKINASE [Suspect]
     Indication: ISCHAEMIC STROKE

REACTIONS (3)
  - HAEMORRHAGE INTRACRANIAL [None]
  - DEATH [None]
  - SUBARACHNOID HAEMORRHAGE [None]
